FAERS Safety Report 12694483 (Version 1)
Quarter: 2016Q3

REPORT INFORMATION
  Report Type: Spontaneous
  Country: US (occurrence: US)
  Receive Date: 20160829
  Receipt Date: 20160829
  Transmission Date: 20161109
  Serious: Yes (Hospitalization)
  Sender: FDA-Public Use
  Company Number: US-B.I. PHARMACEUTICALS,INC./RIDGEFIELD-2016-BI-54878BP

PATIENT
  Age: 56 Year
  Sex: Male

DRUGS (2)
  1. COMBIVENT [Suspect]
     Active Substance: ALBUTEROL SULFATE\IPRATROPIUM BROMIDE
     Indication: CHRONIC OBSTRUCTIVE PULMONARY DISEASE
     Dosage: DOSE PER APPLICATION: 20 MCG / 100 MCG; DAILY DOSE: 80 MCG / 400 MCG
     Route: 055
     Dates: start: 201607, end: 20160813
  2. SPIRIVA [Suspect]
     Active Substance: TIOTROPIUM BROMIDE MONOHYDRATE
     Indication: CHRONIC OBSTRUCTIVE PULMONARY DISEASE
     Route: 055
     Dates: start: 2015

REACTIONS (6)
  - Respiratory failure [Recovered/Resolved]
  - Respiratory failure [Recovered/Resolved]
  - Carbon dioxide increased [Recovered/Resolved]
  - Mechanical ventilation [Recovered/Resolved]
  - Carbon dioxide increased [Recovered/Resolved]
  - Mechanical ventilation [Recovered/Resolved]

NARRATIVE: CASE EVENT DATE: 201604
